FAERS Safety Report 25104199 (Version 1)
Quarter: 2025Q1

REPORT INFORMATION
  Report Type: Spontaneous
  Country: US (occurrence: US)
  Receive Date: 20250321
  Receipt Date: 20250321
  Transmission Date: 20250409
  Serious: Yes (Other)
  Sender: MYLAN
  Company Number: US-MYLANLABS-2025M1023435

PATIENT
  Age: 68 Year
  Sex: Male

DRUGS (5)
  1. TIMOLOL [Suspect]
     Active Substance: TIMOLOL
     Indication: Uveitic glaucoma
  2. PREDNISOLONE [Suspect]
     Active Substance: PREDNISOLONE
     Indication: Corneal oedema
  3. SODIUM CHLORIDE [Suspect]
     Active Substance: SODIUM CHLORIDE
     Indication: Corneal oedema
  4. MYCOPHENOLATE MOFETIL [Suspect]
     Active Substance: MYCOPHENOLATE MOFETIL
     Indication: Corneal graft failure
     Dosage: 1 GRAM, BID
  5. BRIMONIDINE [Suspect]
     Active Substance: BRIMONIDINE TARTRATE
     Indication: Uveitic glaucoma

REACTIONS (2)
  - Infectious crystalline keratopathy [Recovered/Resolved]
  - Drug ineffective [Unknown]
